FAERS Safety Report 16927777 (Version 1)
Quarter: 2019Q4

REPORT INFORMATION
  Report Type: Report from Study
  Country: BR (occurrence: BR)
  Receive Date: 20191016
  Receipt Date: 20191016
  Transmission Date: 20200122
  Serious: Yes (Death)
  Sender: FDA-Public Use
  Company Number: NVSC2019BR003237

PATIENT
  Sex: Female

DRUGS (3)
  1. SEEBRI [Suspect]
     Active Substance: GLYCOPYRROLATE
     Indication: LUNG DISORDER
     Dosage: UNK, QD
     Route: 065
  2. ONBRIZE [Suspect]
     Active Substance: INDACATEROL MALEATE
     Indication: LUNG DISORDER
     Dosage: UNK, QD
     Route: 065
  3. ULTIBRO [Suspect]
     Active Substance: GLYCOPYRRONIUM\INDACATEROL
     Indication: LUNG DISORDER
     Dosage: UNK, QD
     Route: 065

REACTIONS (2)
  - Product use in unapproved indication [Unknown]
  - Death [Fatal]

NARRATIVE: CASE EVENT DATE: 201909
